FAERS Safety Report 23622888 (Version 1)
Quarter: 2024Q1

REPORT INFORMATION
  Report Type: Spontaneous
  Country: US (occurrence: None)
  Receive Date: 20240312
  Receipt Date: 20240312
  Transmission Date: 20240410
  Serious: Yes (Hospitalization)
  Sender: FDA-Public Use
  Company Number: None

PATIENT
  Age: 48 Year
  Sex: Female
  Weight: 87.3 kg

DRUGS (2)
  1. XOLAIR [Suspect]
     Active Substance: OMALIZUMAB
     Indication: Chronic spontaneous urticaria
     Dosage: OTHER FREQUENCY : MONTHLY;?
     Route: 058
     Dates: start: 20210715
  2. XOLAIR [Concomitant]
     Active Substance: OMALIZUMAB

REACTIONS (3)
  - Nausea [None]
  - Vomiting [None]
  - Injection related reaction [None]

NARRATIVE: CASE EVENT DATE: 20240305
